FAERS Safety Report 6757083-3 (Version None)
Quarter: 2010Q2

REPORT INFORMATION
  Report Type: 
  Country: None (occurrence: None)
  Receive Date: 20100604
  Receipt Date: 20100528
  Transmission Date: 20101027
  Serious: Yes (Hospitalization)
  Sender: FDA-Public Use
  Company Number: JP-MERCK-0710USA06045

PATIENT
  Age: 74 Year
  Sex: Female

DRUGS (12)
  1. ZETIA [Suspect]
     Indication: HYPERCHOLESTEROLAEMIA
     Route: 048
     Dates: start: 20071006, end: 20071019
  2. ALFACALCIDOL [Concomitant]
     Route: 065
     Dates: start: 20040507, end: 20081102
  3. ALLOPURINOL [Concomitant]
     Route: 065
     Dates: start: 20040911, end: 20071018
  4. ATENOLOL [Concomitant]
     Route: 065
     Dates: start: 20040517
  5. ISOSORBIDE DINITRATE [Concomitant]
     Route: 065
     Dates: start: 20040517, end: 20081102
  6. METFORMIN HYDROCHLORIDE [Concomitant]
     Route: 065
     Dates: start: 20040608
  7. OMEPRAZOLE [Concomitant]
     Route: 065
     Dates: start: 20041115, end: 20081102
  8. MOSAPRIDE CITRATE [Concomitant]
     Route: 065
     Dates: start: 20051026, end: 20071018
  9. LOXOPROFEN SODIUM [Concomitant]
     Route: 065
     Dates: start: 20070926, end: 20081102
  10. BEZAFIBRATE [Concomitant]
     Route: 065
     Dates: start: 20050308, end: 20071018
  11. CANDESARTAN CILEXETIL [Concomitant]
     Route: 065
     Dates: start: 20070327
  12. CLOPIDOGREL BISULFATE [Concomitant]
     Route: 065
     Dates: start: 20070226

REACTIONS (3)
  - ASTHENIA [None]
  - BLOOD CREATINE PHOSPHOKINASE INCREASED [None]
  - GAIT DISTURBANCE [None]
